FAERS Safety Report 19174550 (Version 1)
Quarter: 2021Q2

REPORT INFORMATION
  Report Type: Report from Study
  Country: BR (occurrence: BR)
  Receive Date: 20210423
  Receipt Date: 20210423
  Transmission Date: 20210717
  Serious: Yes (Other)
  Sender: FDA-Public Use
  Company Number: NVSC2021BR087301

PATIENT
  Age: 51 Year
  Sex: Male

DRUGS (1)
  1. COSENTYX [Suspect]
     Active Substance: SECUKINUMAB
     Indication: ANKYLOSING SPONDYLITIS
     Dosage: 150 MG
     Route: 065
     Dates: start: 20190715

REACTIONS (11)
  - Amnesia [Recovering/Resolving]
  - Dyspnoea [Unknown]
  - Memory impairment [Recovering/Resolving]
  - Throat irritation [Recovering/Resolving]
  - Ageusia [Recovering/Resolving]
  - Lung disorder [Recovering/Resolving]
  - Anosmia [Recovering/Resolving]
  - COVID-19 [Recovering/Resolving]
  - General physical health deterioration [Unknown]
  - Pneumonia [Recovering/Resolving]
  - Chest pain [Unknown]

NARRATIVE: CASE EVENT DATE: 20210116
